FAERS Safety Report 4697106-9 (Version None)
Quarter: 2005Q2

REPORT INFORMATION
  Report Type: 
  Country: None (occurrence: None)
  Receive Date: 20050620
  Receipt Date: 20050524
  Transmission Date: 20051028
  Serious: Yes (Other)
  Sender: FDA-Public Use
  Company Number: B0382808A

PATIENT
  Age: 34 Year
  Sex: Female

DRUGS (3)
  1. LAMICTAL [Suspect]
     Indication: EPILEPSY
  2. VALPROIC ACID [Suspect]
     Indication: EPILEPSY
     Dosage: 250 MG/FIVE TIMES PER DAY
  3. OXCARBAZEPINE [Concomitant]

REACTIONS (8)
  - ANTICONVULSANT DRUG LEVEL ABOVE THERAPEUTIC [None]
  - ANTICONVULSANT TOXICITY [None]
  - DIPLOPIA [None]
  - ENCEPHALOMALACIA [None]
  - GAIT DISTURBANCE [None]
  - HYDROCEPHALUS [None]
  - NYSTAGMUS [None]
  - OSCILLOPSIA [None]
